FAERS Safety Report 7845401 (Version 2)
Quarter: 2013Q4

REPORT INFORMATION
  Report Type: Spontaneous
  Country: US (occurrence: US)
  Receive Date: 20110308
  Receipt Date: 20131218
  Transmission Date: 20140711
  Serious: No
  Sender: FDA-Public Use
  Company Number: US-BIOGENIDEC-2011BI008273

PATIENT
  Age: 56 Year
  Sex: Female

DRUGS (1)
  1. AVONEX [Suspect]
     Indication: MULTIPLE SCLEROSIS
     Route: 030
     Dates: start: 19981230

REACTIONS (2)
  - Multiple sclerosis [Not Recovered/Not Resolved]
  - Gait disturbance [Not Recovered/Not Resolved]
